FAERS Safety Report 10418412 (Version 2)
Quarter: 2014Q3

REPORT INFORMATION
  Report Type: Spontaneous
  Country: FR (occurrence: FR)
  Receive Date: 20140829
  Receipt Date: 20140922
  Transmission Date: 20150326
  Serious: Yes (Other)
  Sender: FDA-Public Use
  Company Number: FR-009507513-1408FRA011281

PATIENT
  Age: 71 Year
  Sex: Male

DRUGS (3)
  1. CALCIPARINE [Suspect]
     Active Substance: HEPARIN CALCIUM
     Dosage: 5000IU, EACH 9 HOURS (ALSO REPORTED AS EACH 8 HOURS)
     Route: 042
     Dates: start: 20140714, end: 20140716
  2. ARGANOVA [Suspect]
     Active Substance: ARGATROBAN
     Dosage: 17.2 MG, QD
     Route: 042
     Dates: start: 20140718, end: 20140721
  3. ORGARAN [Suspect]
     Active Substance: DANAPAROID SODIUM
     Dosage: 2250IU, QD
     Route: 042
     Dates: start: 20140717, end: 20140717

REACTIONS (1)
  - Thrombocytopenia [Recovered/Resolved]

NARRATIVE: CASE EVENT DATE: 20140716
